FAERS Safety Report 9169186 (Version 2)
Quarter: 2013Q1

REPORT INFORMATION
  Report Type: Report from Study
  Country: IT (occurrence: IT)
  Receive Date: 20130318
  Receipt Date: 20130319
  Transmission Date: 20140127
  Serious: Yes (Death)
  Sender: FDA-Public Use
  Company Number: IT-ROCHE-1201293

PATIENT
  Sex: Male

DRUGS (4)
  1. ALTEPLASE [Suspect]
     Indication: FIBRINOUS BRONCHITIS
     Dosage: DIVIDED INTO 4 DOSES
     Route: 050
  2. PULMOVENT [Suspect]
     Indication: FIBRINOUS BRONCHITIS
     Route: 050
  3. SILDENAFIL [Concomitant]
     Indication: FIBRINOUS BRONCHITIS
     Route: 065
  4. BOSENTAN [Concomitant]
     Indication: FIBRINOUS BRONCHITIS
     Route: 065

REACTIONS (3)
  - Asphyxia [Fatal]
  - Cardiac failure [Fatal]
  - Drug ineffective [Fatal]
